FAERS Safety Report 24321107 (Version 4)
Quarter: 2024Q4

REPORT INFORMATION
  Report Type: Spontaneous
  Country: US (occurrence: US)
  Receive Date: 20240916
  Receipt Date: 20241223
  Transmission Date: 20250115
  Serious: No
  Sender: SANOFI AVENTIS
  Company Number: US-SA-2024SA265479

PATIENT
  Age: 72 Year
  Sex: Female

DRUGS (2)
  1. DUPIXENT [Suspect]
     Active Substance: DUPILUMAB
     Indication: Product used for unknown indication
     Dosage: 200MG, QOW
     Route: 058
  2. COVID-19 VACCINE NOS [Suspect]
     Active Substance: COVID-19 VACCINE
     Dosage: UNK

REACTIONS (12)
  - Weight increased [Unknown]
  - Cough [Unknown]
  - Dyspnoea exertional [Unknown]
  - Feeling hot [Unknown]
  - Wheezing [Unknown]
  - Visual impairment [Unknown]
  - Vitreous floaters [Unknown]
  - Swelling [Unknown]
  - Arthralgia [Unknown]
  - Dizziness [Unknown]
  - Respiratory tract congestion [Unknown]
  - Inappropriate schedule of product administration [Unknown]
